FAERS Safety Report 19787199 (Version 1)
Quarter: 2021Q3

REPORT INFORMATION
  Report Type: Spontaneous
  Country: US (occurrence: US)
  Receive Date: 20210903
  Receipt Date: 20210903
  Transmission Date: 20211014
  Serious: Yes (Other)
  Sender: FDA-Public Use
  Company Number: US-UPSHER-SMITH LABORATORIES, LLC-2021USL00602

PATIENT
  Sex: Female

DRUGS (1)
  1. PACERONE [Suspect]
     Active Substance: AMIODARONE HYDROCHLORIDE
     Dosage: 200 MG, 2X/DAY

REACTIONS (4)
  - Internal haemorrhage [Unknown]
  - Balance disorder [Unknown]
  - Tremor [Unknown]
  - Dizziness [Unknown]
